FAERS Safety Report 25591035 (Version 1)
Quarter: 2025Q3

REPORT INFORMATION
  Report Type: Spontaneous
  Country: US (occurrence: US)
  Receive Date: 20250722
  Receipt Date: 20250722
  Transmission Date: 20251021
  Serious: Yes (Life-Threatening, Hospitalization)
  Sender: FERRING
  Company Number: US-FERRINGPH-2025FE03847

PATIENT

DRUGS (5)
  1. MENOTROPINS [Suspect]
     Active Substance: MENOTROPINS
     Indication: Controlled ovarian stimulation
     Route: 065
  2. CHORIONIC GONADOTROPHIN [Suspect]
     Active Substance: CHORIOGONADOTROPIN ALFA
     Indication: Controlled ovarian stimulation
     Route: 065
  3. LEUPROLIDE [Suspect]
     Active Substance: LEUPROLIDE
     Indication: Controlled ovarian stimulation
     Route: 065
  4. LETROZOLE [Suspect]
     Active Substance: LETROZOLE
     Indication: Controlled ovarian stimulation
     Route: 065
  5. FOLLITROPIN [Suspect]
     Active Substance: FOLLITROPIN
     Indication: Controlled ovarian stimulation
     Route: 065

REACTIONS (3)
  - Disseminated intravascular coagulation [Unknown]
  - Ovarian hyperstimulation syndrome [Unknown]
  - Contraindicated product administered [Unknown]
